FAERS Safety Report 8407667-1 (Version None)
Quarter: 2012Q2

REPORT INFORMATION
  Report Type: 
  Country: None (occurrence: None)
  Receive Date: 20120604
  Receipt Date: 20120525
  Transmission Date: 20120825
  Serious: Yes (Other)
  Sender: FDA-Public Use
  Company Number: DE-BAYER-2012-051807

PATIENT
  Sex: Female

DRUGS (1)
  1. MIRENA [Suspect]
     Indication: CONTRACEPTION
     Dosage: 20 MCG/24HR, CONT
     Route: 015
     Dates: start: 20060101, end: 20080101

REACTIONS (5)
  - VAGINAL HAEMORRHAGE [None]
  - STILLBIRTH [None]
  - UTERINE CONTRACTIONS DURING PREGNANCY [None]
  - CHORIOAMNIONITIS [None]
  - PREGNANCY WITH CONTRACEPTIVE DEVICE [None]
